FAERS Safety Report 6282578-9 (Version None)
Quarter: 2009Q3

REPORT INFORMATION
  Report Type: 
  Country: None (occurrence: None)
  Receive Date: 20090722
  Receipt Date: 20070918
  Transmission Date: 20100115
  Serious: Yes (Hospitalization)
  Sender: FDA-Public Use
  Company Number: FR-GUERBET-20070164

PATIENT
  Age: 69 Year
  Sex: Female

DRUGS (4)
  1. HEXABRIX [Suspect]
     Indication: ENDOSCOPIC RETROGRADE CHOLANGIOPANCREATOGRAPHY
     Dosage: INTRAVENOUS (NOT OTHERWISE SPECIFIED)
     Dates: start: 20070408, end: 20070408
  2. ROCEPHIN [Suspect]
     Indication: CHOLANGITIS
     Dosage: UNSPECIFIED INTERVAL INTRAVENOUS (NOT OTHERWISE SPECIFIED)
     Route: 042
     Dates: start: 20070729, end: 20070806
  3. FLAGYL [Suspect]
     Indication: CHOLANGITIS
     Dosage: UNSPECIFIED INTERVAL INTRAVENOUS (NOT OTHERWISE SPECIFIED)
     Dates: start: 20070731, end: 20070806
  4. AMIKIN [Suspect]
     Indication: CHOLANGITIS
     Dosage: UNSPECIFIED INTERVAL INTRAVENOUS (NOT OTHERWISE SPECIFIED)
     Route: 042
     Dates: start: 20070731, end: 20070804

REACTIONS (5)
  - BLOOD CREATINE PHOSPHOKINASE INCREASED [None]
  - DERMATITIS BULLOUS [None]
  - ERYTHEMA [None]
  - PUSTULAR PSORIASIS [None]
  - RASH VESICULAR [None]
